FAERS Safety Report 15104769 (Version 3)
Quarter: 2018Q4

REPORT INFORMATION
  Report Type: Report from Study
  Country: US (occurrence: US)
  Receive Date: 20180703
  Receipt Date: 20181128
  Transmission Date: 20190204
  Serious: Yes (Other)
  Sender: FDA-Public Use
  Company Number: US-JAZZ-2017-US-000477

PATIENT
  Sex: Female

DRUGS (20)
  1. CITALOPRAM [Concomitant]
     Active Substance: CITALOPRAM HYDROBROMIDE
  2. TIZANIDINE HCL [Concomitant]
     Active Substance: TIZANIDINE HYDROCHLORIDE
  3. XYREM [Suspect]
     Active Substance: SODIUM OXYBATE
     Indication: CATAPLEXY
     Dosage: DOSE ADJUSTMENT
     Route: 048
     Dates: start: 2005, end: 2010
  4. MOMETASONE FUROATE. [Concomitant]
     Active Substance: MOMETASONE FUROATE
  5. GABAPENTIN. [Concomitant]
     Active Substance: GABAPENTIN
  6. MOBIC [Concomitant]
     Active Substance: MELOXICAM
  7. ADDERALL [Concomitant]
     Active Substance: AMPHETAMINE ASPARTATE\AMPHETAMINE SULFATE\DEXTROAMPHETAMINE SACCHARATE\DEXTROAMPHETAMINE SULFATE
  8. LORATADINE W/PSEUDOEPHEDRINE SULFATE [Concomitant]
  9. MODAFINIL. [Concomitant]
     Active Substance: MODAFINIL
  10. ALPRAZOLAM. [Concomitant]
     Active Substance: ALPRAZOLAM
  11. DIPHENHYDRAMINE HYDROCHLORIDE. [Concomitant]
     Active Substance: DIPHENHYDRAMINE HYDROCHLORIDE
  12. XYREM [Suspect]
     Active Substance: SODIUM OXYBATE
     Dosage: 4.5 G, BID
     Route: 048
     Dates: start: 201105
  13. LORATADINE. [Concomitant]
     Active Substance: LORATADINE
  14. METOCLOPRAMIDE. [Concomitant]
     Active Substance: METOCLOPRAMIDE
  15. XANAX [Concomitant]
     Active Substance: ALPRAZOLAM
  16. XYREM [Suspect]
     Active Substance: SODIUM OXYBATE
     Indication: NARCOLEPSY
     Dosage: 2.25 G, BID
     Route: 048
     Dates: start: 200511, end: 2005
  17. PROMETHAZINE [Concomitant]
     Active Substance: PROMETHAZINE\PROMETHAZINE HYDROCHLORIDE
  18. ONDANSETRON [Concomitant]
     Active Substance: ONDANSETRON
  19. LIDODERM [Concomitant]
     Active Substance: LIDOCAINE
  20. LEXAPRO [Concomitant]
     Active Substance: ESCITALOPRAM OXALATE

REACTIONS (5)
  - Thyroid mass [Unknown]
  - Thyroid cyst [Recovering/Resolving]
  - Pre-existing condition improved [Unknown]
  - Carpal tunnel syndrome [Not Recovered/Not Resolved]
  - Tendonitis [Unknown]

NARRATIVE: CASE EVENT DATE: 2006
